FAERS Safety Report 6597804-6 (Version None)
Quarter: 2010Q1

REPORT INFORMATION
  Report Type: 
  Country: None (occurrence: None)
  Receive Date: 20100223
  Receipt Date: 20100216
  Transmission Date: 20100710
  Serious: Yes (Other)
  Sender: FDA-Public Use
  Company Number: US-AMGEN-QUU393144

PATIENT
  Age: 62 Year
  Sex: Male

DRUGS (3)
  1. NEUPOGEN [Suspect]
     Indication: DRUG USE FOR UNKNOWN INDICATION
     Dates: start: 20100209, end: 20100210
  2. LEUKINE [Concomitant]
     Dates: start: 20100201
  3. BACTRIM [Concomitant]

REACTIONS (2)
  - PYREXIA [None]
  - RASH PRURITIC [None]
